FAERS Safety Report 13582756 (Version 1)
Quarter: 2017Q2

REPORT INFORMATION
  Report Type: Spontaneous
  Country: US (occurrence: US)
  Receive Date: 20170525
  Receipt Date: 20170525
  Transmission Date: 20170830
  Serious: No
  Sender: FDA-Public Use
  Company Number: US-TAIHO ONCOLOGY INC-EU-2017-00801

PATIENT
  Age: 77 Year
  Sex: Female
  Weight: 60.38 kg

DRUGS (8)
  1. AMLODIPINE [Concomitant]
     Active Substance: AMLODIPINE BESYLATE
     Dosage: NI
  2. ALDACTONE [Concomitant]
     Active Substance: SPIRONOLACTONE
     Dosage: NI
  3. LONSURF [Suspect]
     Active Substance: TIPIRACIL HYDROCHLORIDE\TRIFLURIDINE
     Indication: COLON CANCER
     Dosage: 55 MG BID DAYS 1-4 AND 8-11 AND 30 MG BID ON DAYS 5 AND 12
     Route: 048
     Dates: start: 20170223, end: 20170511
  4. LIPITOR [Concomitant]
     Active Substance: ATORVASTATIN CALCIUM
     Dosage: NI
  5. LASIX [Concomitant]
     Active Substance: FUROSEMIDE
     Dosage: NI
  6. LOSARTAN. [Concomitant]
     Active Substance: LOSARTAN
     Dosage: NI
  7. NEURONTIN [Concomitant]
     Active Substance: GABAPENTIN
     Dosage: NI
  8. METFORMIN [Concomitant]
     Active Substance: METFORMIN HYDROCHLORIDE
     Dosage: NI

REACTIONS (2)
  - Inappropriate schedule of drug administration [Recovered/Resolved]
  - Tumour marker increased [Recovered/Resolved]

NARRATIVE: CASE EVENT DATE: 20170223
